FAERS Safety Report 9894566 (Version 1)
Quarter: 2014Q1

REPORT INFORMATION
  Report Type: Spontaneous
  Country: DZ (occurrence: DZ)
  Receive Date: 20140213
  Receipt Date: 20140213
  Transmission Date: 20141002
  Serious: Yes (Life-Threatening, Other)
  Sender: FDA-Public Use
  Company Number: DZ-PFIZER INC-2014040871

PATIENT
  Age: 60 Year
  Sex: Female
  Weight: 90 kg

DRUGS (1)
  1. TAHOR [Suspect]
     Indication: PROPHYLAXIS
     Dosage: 80 MG, UNK
     Dates: end: 20140130

REACTIONS (2)
  - Cerebrovascular accident [Unknown]
  - Hepatocellular injury [Unknown]
